FAERS Safety Report 8382578 (Version 3)
Quarter: 2012Q4

REPORT INFORMATION
  Report Type: 
  Country: US (occurrence: US)
  Receive Date: 20120201
  Receipt Date: 20121019
  Transmission Date: 20130627
  Serious: Yes (Death, Other)
  Sender: FDA-Public Use
  Company Number: US-ROCHE-1035020

PATIENT
  Age: 48 Year
  Sex: Female
  Weight: 90 kg

DRUGS (11)
  1. AVASTIN [Suspect]
     Indication: BRAIN NEOPLASM
     Route: 042
     Dates: start: 20080822, end: 20080915
  2. AVASTIN [Suspect]
     Indication: BRAIN NEOPLASM MALIGNANT
  3. DEXAMETHASONE [Suspect]
     Indication: BRAIN NEOPLASM
     Route: 048
     Dates: start: 200711
  4. TEMODAR [Concomitant]
     Indication: BRAIN NEOPLASM
     Route: 048
     Dates: start: 20071107, end: 20071208
  5. TEMODAR [Concomitant]
     Route: 048
     Dates: start: 20080121, end: 20080126
  6. TEMODAR [Concomitant]
     Route: 048
     Dates: start: 20080226, end: 20080902
  7. KEPPRA [Concomitant]
     Indication: CONVULSION
     Route: 048
     Dates: start: 200711
  8. PROTONIX [Concomitant]
     Route: 048
     Dates: start: 200711, end: 200809
  9. NEXIUM [Concomitant]
     Route: 065
     Dates: start: 200809
  10. SYNTHROID [Concomitant]
     Route: 048
     Dates: start: 200711
  11. BACTRIM (DS) [Concomitant]
     Route: 048

REACTIONS (3)
  - Death [Fatal]
  - Ulcer [Not Recovered/Not Resolved]
  - Disease progression [Unknown]
